FAERS Safety Report 19126567 (Version 3)
Quarter: 2021Q3

REPORT INFORMATION
  Report Type: Spontaneous
  Country: US (occurrence: US)
  Receive Date: 20210412
  Receipt Date: 20210810
  Transmission Date: 20211014
  Serious: Yes (Death, Hospitalization, Other)
  Sender: FDA-Public Use
  Company Number: US-GILEAD-2021-0524876

PATIENT
  Age: 92 Year
  Sex: Male

DRUGS (2)
  1. VEKLURY [Suspect]
     Active Substance: REMDESIVIR
     Indication: COVID-19
     Dosage: LOADING DOSE, ONCE
     Route: 065
     Dates: start: 202104, end: 202104
  2. VEKLURY [Suspect]
     Active Substance: REMDESIVIR
     Dosage: SECOND DOSE, ONCE
     Route: 065
     Dates: start: 202104, end: 202104

REACTIONS (4)
  - Renal function test abnormal [Not Recovered/Not Resolved]
  - Death [Fatal]
  - Blood creatinine increased [Not Recovered/Not Resolved]
  - Feeling abnormal [Unknown]

NARRATIVE: CASE EVENT DATE: 202104
